FAERS Safety Report 5904347-9 (Version None)
Quarter: 2008Q3

REPORT INFORMATION
  Report Type: 
  Country: None (occurrence: None)
  Receive Date: 20080930
  Receipt Date: 20080930
  Transmission Date: 20090109
  Serious: Yes (Other)
  Sender: FDA-Public Use
  Company Number: None

PATIENT
  Age: 49 Year
  Sex: Female
  Weight: 76.2043 kg

DRUGS (1)
  1. TOPAMAX [Suspect]
     Indication: MIGRAINE
     Dosage: 100MG 1 X DAY PO
     Route: 048
     Dates: start: 20040901, end: 20041105

REACTIONS (6)
  - CHEST PAIN [None]
  - EYE OEDEMA [None]
  - HYPOAESTHESIA [None]
  - PHARYNGEAL OEDEMA [None]
  - UNEVALUABLE EVENT [None]
  - URTICARIA [None]
